FAERS Safety Report 22146734 (Version 1)
Quarter: 2023Q1

REPORT INFORMATION
  Report Type: Spontaneous
  Country: IT (occurrence: IT)
  Receive Date: 20230328
  Receipt Date: 20230328
  Transmission Date: 20230418
  Serious: Yes (Hospitalization, Other)
  Sender: FDA-Public Use
  Company Number: IT-MOLTENI-2023ML000105

PATIENT
  Age: 22 Year
  Sex: Male

DRUGS (6)
  1. TAVOR (LORAZEPAM) [Interacting]
     Active Substance: LORAZEPAM
     Dosage: 08:00 AM: 1 CP, 03:00 PM: 1 CP
     Route: 048
  2. CLOZAPINE [Interacting]
     Active Substance: CLOZAPINE
     Dosage: 08:00 AM: 1 CP, 03:00 PM: 2 CP, 09:00 PM: 1 CP
     Route: 048
  3. METHADONE HYDROCHLORIDE [Interacting]
     Active Substance: METHADONE HYDROCHLORIDE
     Indication: Drug dependence
     Dosage: 20 MG, 1X/DAY
     Dates: start: 20230227, end: 20230227
  4. METHADONE HYDROCHLORIDE [Interacting]
     Active Substance: METHADONE HYDROCHLORIDE
     Indication: Drug withdrawal syndrome
     Dosage: 30 MG, 1X/DAY
     Dates: start: 20230228
  5. ARIPIPRAZOLE [Interacting]
     Active Substance: ARIPIPRAZOLE
     Dosage: 08.00 AM: 1 CP, 09:00 PM: 1 CP
  6. VALPROATE SODIUM [Interacting]
     Active Substance: VALPROATE SODIUM
     Dosage: 08:00 AM: 1/2 CP, 09:00 PM: 1 CP

REACTIONS (6)
  - Oxygen saturation decreased [Recovered/Resolved]
  - Tachycardia [Recovered/Resolved]
  - Hyperpyrexia [Recovered/Resolved]
  - Sopor [Recovered/Resolved]
  - Labelled drug-drug interaction issue [Unknown]
  - Drug withdrawal syndrome [Recovered/Resolved]

NARRATIVE: CASE EVENT DATE: 20230228
